FAERS Safety Report 11994236 (Version 1)
Quarter: 2016Q1

REPORT INFORMATION
  Report Type: Spontaneous
  Country: US (occurrence: US)
  Receive Date: 20160203
  Receipt Date: 20160203
  Transmission Date: 20160526
  Serious: No
  Sender: FDA-Public Use
  Company Number: US-UCBSA-2015029778

PATIENT
  Age: 56 Year
  Sex: Female

DRUGS (1)
  1. KEPPRA [Suspect]
     Active Substance: LEVETIRACETAM
     Indication: SEIZURE
     Dosage: UNKNOWN DOSE

REACTIONS (12)
  - Impaired work ability [Unknown]
  - Aggression [Unknown]
  - Abnormal behaviour [Unknown]
  - Anger [Unknown]
  - Fall [Unknown]
  - Brain neoplasm [Unknown]
  - Mood altered [Unknown]
  - Feeling abnormal [Unknown]
  - Stress [Unknown]
  - Shock [Unknown]
  - Asthenia [Unknown]
  - Fatigue [Unknown]
